FAERS Safety Report 21872382 (Version 1)
Quarter: 2023Q1

REPORT INFORMATION
  Report Type: Spontaneous
  Country: US (occurrence: US)
  Receive Date: 20230117
  Receipt Date: 20230117
  Transmission Date: 20230418
  Serious: No
  Sender: FDA-Public Use
  Company Number: US-PERRIGO-22US000036

PATIENT
  Age: 70 Year
  Sex: Female
  Weight: 72.562 kg

DRUGS (11)
  1. NICOTINE POLACRILEX [Suspect]
     Active Substance: NICOTINE
     Indication: Smoking cessation therapy
     Dosage: 4 TO 6 MG, 5 TIMES DAILY
     Route: 048
     Dates: start: 20220102
  2. VENLAFAXINE [Concomitant]
     Active Substance: VENLAFAXINE HYDROCHLORIDE
     Indication: Mental disorder
     Dosage: 300 MG, QD
     Route: 065
     Dates: start: 2014
  3. BUPROPION HYDROCHLORIDE [Concomitant]
     Active Substance: BUPROPION HYDROCHLORIDE
     Indication: Mental disorder
     Dosage: 100 MG, BID
     Route: 065
     Dates: start: 2015
  4. TRAZODONE HCL [Concomitant]
     Active Substance: TRAZODONE HYDROCHLORIDE
     Indication: Sleep disorder
     Dosage: UNK
     Route: 065
     Dates: start: 202112
  5. TOPIRAMATE [Concomitant]
     Active Substance: TOPIRAMATE
     Indication: Bipolar disorder
     Dosage: 25 MG, QD TO BID
     Route: 065
     Dates: start: 202112
  6. TOPIRAMATE [Concomitant]
     Active Substance: TOPIRAMATE
     Indication: Energy increased
  7. ATORVASTATIN CALCIUM [Concomitant]
     Active Substance: ATORVASTATIN CALCIUM
     Indication: Blood cholesterol increased
     Dosage: 20 MG, QD
     Route: 065
     Dates: start: 2012
  8. METOPROLOL TARTRATE [Concomitant]
     Active Substance: METOPROLOL TARTRATE
     Indication: Hypertension
     Dosage: 25 MG, BID
     Route: 065
     Dates: start: 2012
  9. LEVOTHYROXINE SODIUM [Concomitant]
     Active Substance: LEVOTHYROXINE SODIUM
     Indication: Hypothyroidism
     Dosage: 100 MCG, UNK
     Route: 065
     Dates: start: 1993
  10. POTASSIUM [Concomitant]
     Active Substance: POTASSIUM
     Indication: Blood potassium decreased
     Dosage: 20 MEQ, BID
     Route: 065
     Dates: start: 2012
  11. HYDROCHLOROTHIAZIDE\TRIAMTERENE [Concomitant]
     Active Substance: HYDROCHLOROTHIAZIDE\TRIAMTERENE
     Indication: Product used for unknown indication
     Dosage: 37.5/25MG QD
     Route: 065
     Dates: start: 2012

REACTIONS (2)
  - Incorrect dose administered [Not Recovered/Not Resolved]
  - Wrong technique in product usage process [Not Recovered/Not Resolved]

NARRATIVE: CASE EVENT DATE: 20220102
